FAERS Safety Report 7003027-9 (Version None)
Quarter: 2010Q3

REPORT INFORMATION
  Report Type: 
  Country: None (occurrence: None)
  Receive Date: 20100920
  Receipt Date: 20071116
  Transmission Date: 20110219
  Serious: No
  Sender: FDA-Public Use
  Company Number: US-ASTRAZENECA-2005UW15263

PATIENT
  Age: 17910 Day
  Sex: Female
  Weight: 117.9 kg

DRUGS (14)
  1. SEROQUEL [Suspect]
     Dosage: 25 MG IN THE MORNING AND 100 MG AT NIGHT
     Route: 048
     Dates: start: 20030819
  2. ZYPREXA [Suspect]
     Dosage: 20 - 40 MG DAILY
     Dates: start: 20030819
  3. LASIX [Concomitant]
     Dosage: 80 - 160 MG DAILY
     Dates: start: 20030819
  4. PLAVIX [Concomitant]
     Dates: start: 20030819
  5. LISINOPRIL [Concomitant]
     Dates: start: 20030819
  6. TOPROL-XL [Concomitant]
     Dosage: 100 - 400 MG DAILY
     Dates: start: 19961025
  7. CARDURA [Concomitant]
     Dates: start: 20030819
  8. PRILOSEC [Concomitant]
     Dosage: 20 - 40 MG DAILY
     Dates: start: 20030819
  9. EFFEXOR [Concomitant]
     Dates: start: 20030819
  10. PRAVACHOL [Concomitant]
     Dates: start: 19961025
  11. ZOLOFT [Concomitant]
     Dates: start: 20030819
  12. LORAZEPAM [Concomitant]
     Dates: start: 20030819
  13. CLONIDINE [Concomitant]
     Dates: start: 20030819
  14. PROCARDIA [Concomitant]
     Dosage: 90 - 180 MG DAILY
     Dates: start: 19961025

REACTIONS (4)
  - BLOOD GLUCOSE INCREASED [None]
  - DIABETES MELLITUS [None]
  - OBESITY [None]
  - TYPE 2 DIABETES MELLITUS [None]
